FAERS Safety Report 17420347 (Version 5)
Quarter: 2020Q3

REPORT INFORMATION
  Report Type: Spontaneous
  Country: US (occurrence: US)
  Receive Date: 20200214
  Receipt Date: 20200717
  Transmission Date: 20201102
  Serious: No
  Sender: FDA-Public Use
  Company Number: US-VERTEX PHARMACEUTICALS-2020-002614

PATIENT
  Age: 71 Year
  Sex: Female

DRUGS (23)
  1. TOBRAMYCIN. [Concomitant]
     Active Substance: TOBRAMYCIN
  2. MAGNESIUM [Concomitant]
     Active Substance: MAGNESIUM
  3. FEMRING [Concomitant]
     Active Substance: ESTRADIOL ACETATE
  4. NIACINAMIDE [Concomitant]
     Active Substance: NIACINAMIDE
  5. CAYSTON [Concomitant]
     Active Substance: AZTREONAM
  6. GENTAMICIN. [Concomitant]
     Active Substance: GENTAMICIN
  7. SULFACETAMIDE. [Concomitant]
     Active Substance: SULFACETAMIDE
  8. ALBUTEROL [SALBUTAMOL] [Concomitant]
     Active Substance: ALBUTEROL
  9. ALLEGRA [Concomitant]
     Active Substance: FEXOFENADINE HYDROCHLORIDE
  10. CALCIUM [Concomitant]
     Active Substance: CALCIUM
  11. SODIUM CHLORIDE. [Concomitant]
     Active Substance: SODIUM CHLORIDE
  12. PROGESTERONE. [Concomitant]
     Active Substance: PROGESTERONE
     Dosage: UNK
  13. ESTRADIOL. [Concomitant]
     Active Substance: ESTRADIOL
  14. COENZYME [Concomitant]
     Active Substance: UBIDECARENONE
  15. LIVALO [Concomitant]
     Active Substance: PITAVASTATIN CALCIUM
  16. TRETINOIN. [Concomitant]
     Active Substance: TRETINOIN
  17. VITAMIN D [COLECALCIFEROL] [Concomitant]
     Active Substance: CHOLECALCIFEROL
  18. CLINDAMYCIN. [Concomitant]
     Active Substance: CLINDAMYCIN
  19. MIRALAX [Concomitant]
     Active Substance: POLYETHYLENE GLYCOL 3350
  20. TRIKAFTA [Suspect]
     Active Substance: ELEXACAFTOR\IVACAFTOR\TEZACAFTOR
     Indication: CYSTIC FIBROSIS
     Dosage: 2 TABLETS OF 100MG ELEXACAFTOR/ 50 MG TEZACAFTOR/ 75 MG IVACAFTOR AM; 1 TABLET 150 MG IVACAFTOR PM
     Route: 048
     Dates: start: 20200103
  21. ADVAIR HFA [Concomitant]
     Active Substance: FLUTICASONE PROPIONATE\SALMETEROL XINAFOATE
  22. ZETIA [Concomitant]
     Active Substance: EZETIMIBE
  23. FLONASE [Concomitant]
     Active Substance: FLUTICASONE PROPIONATE

REACTIONS (6)
  - Acne [Recovering/Resolving]
  - Peripheral swelling [Recovered/Resolved]
  - Weight increased [Unknown]
  - Joint swelling [Not Recovered/Not Resolved]
  - Pruritus [Recovering/Resolving]
  - Rash [Unknown]

NARRATIVE: CASE EVENT DATE: 202001
